FAERS Safety Report 7375291-8 (Version None)
Quarter: 2011Q1

REPORT INFORMATION
  Report Type: 
  Country: None (occurrence: None)
  Receive Date: 20110325
  Receipt Date: 20110314
  Transmission Date: 20110831
  Serious: Yes (Death)
  Sender: FDA-Public Use
  Company Number: AT-ACTELION-A-CH2011-46231

PATIENT
  Age: 36 Year
  Sex: Female

DRUGS (1)
  1. TRACLEER [Suspect]
     Dosage: UNK , UNK
     Route: 048

REACTIONS (1)
  - PULMONARY EMBOLISM [None]
